FAERS Safety Report 20027275 (Version 1)
Quarter: 2021Q4

REPORT INFORMATION
  Report Type: Spontaneous
  Country: FR (occurrence: FR)
  Receive Date: 20211103
  Receipt Date: 20211103
  Transmission Date: 20220303
  Serious: Yes (Death, Other)
  Sender: FDA-Public Use
  Company Number: None

PATIENT
  Age: 52 Year
  Sex: Female

DRUGS (12)
  1. MIRTAZAPINE [Suspect]
     Active Substance: MIRTAZAPINE
     Indication: Depression
     Dosage: 30 MILLIGRAM, QD
     Route: 048
     Dates: start: 20180928
  2. TRIMEPRAZINE [Suspect]
     Active Substance: TRIMEPRAZINE
     Indication: Insomnia
     Dosage: 40 GTT DROPS, QD
     Route: 048
     Dates: start: 20180928
  3. LOXAPINE SUCCINATE [Suspect]
     Active Substance: LOXAPINE SUCCINATE
     Indication: Psychotic disorder
     Dosage: 425 MILLIGRAM, QD
     Route: 048
     Dates: start: 20181012
  4. PRAZEPAM [Suspect]
     Active Substance: PRAZEPAM
     Indication: Anxiety
     Dosage: 15 MILLIGRAM, QD
     Route: 048
     Dates: start: 20180928
  5. HALDOL [Suspect]
     Active Substance: HALOPERIDOL
     Indication: Bipolar disorder
     Dosage: 20 MILLIGRAM, QD (CONCENTRATION: 2MG/ML,)
     Route: 048
     Dates: start: 20180928
  6. RISPERDAL [Suspect]
     Active Substance: RISPERIDONE
     Indication: Bipolar disorder
     Dosage: 12 MILLIGRAM, QD (FORMULATION: SCORED FILM-COATED TABLET)
     Route: 048
     Dates: start: 20180928
  7. ATROPINE [Concomitant]
     Active Substance: ATROPINE
     Dosage: 4 GTT DROPS, QD
     Route: 060
     Dates: start: 20190315, end: 20190328
  8. MINERAL OIL [Concomitant]
     Active Substance: MINERAL OIL
     Dosage: UNK
     Route: 048
     Dates: start: 20190320, end: 20190328
  9. POTASSIUM BITARTRATE\SODIUM BICARBONATE [Concomitant]
     Active Substance: POTASSIUM BITARTRATE\SODIUM BICARBONATE
     Dosage: UNK
     Route: 054
     Dates: start: 20181026, end: 20190320
  10. KETOCONAZOLE [Concomitant]
     Active Substance: KETOCONAZOLE
     Dosage: UNK
     Route: 003
     Dates: start: 20190316, end: 20190328
  11. SENNOSIDES A AND B [Concomitant]
     Active Substance: SENNOSIDES A AND B
     Dosage: ORAL POWDER IN SACHET
     Route: 048
     Dates: start: 20190327, end: 20190328
  12. DUPHALAC [Concomitant]
     Active Substance: LACTULOSE
     Dosage: UNK
     Route: 048
     Dates: start: 20190320, end: 20190328

REACTIONS (1)
  - Intestinal obstruction [Fatal]

NARRATIVE: CASE EVENT DATE: 20190320
